FAERS Safety Report 9225732 (Version 1)
Quarter: 2013Q2

REPORT INFORMATION
  Report Type: Spontaneous
  Country: GB (occurrence: GB)
  Receive Date: 20130411
  Receipt Date: 20130411
  Transmission Date: 20140414
  Serious: Yes (Other)
  Sender: FDA-Public Use
  Company Number: GB-GLAXOSMITHKLINE-B0880261A

PATIENT
  Age: 60 Year
  Sex: Male

DRUGS (6)
  1. PAROXETINE [Suspect]
     Dosage: 50MG PER DAY
  2. PAROXETINE [Suspect]
     Dosage: 20MG PER DAY
  3. PAROXETINE [Suspect]
  4. CLOZARIL [Suspect]
     Indication: SCHIZOPHRENIA
     Dosage: 450MG PER DAY
     Route: 048
     Dates: start: 20010701, end: 201211
  5. CLOZARIL [Suspect]
  6. CLOZARIL [Suspect]
     Dosage: 250MG PER DAY
     Route: 048
     Dates: start: 201303

REACTIONS (4)
  - Antipsychotic drug level increased [Recovering/Resolving]
  - Sedation [Unknown]
  - Gamma-glutamyltransferase increased [Unknown]
  - Drug interaction [Unknown]
